FAERS Safety Report 12177309 (Version 1)
Quarter: 2016Q1

REPORT INFORMATION
  Report Type: Spontaneous
  Country: US (occurrence: US)
  Receive Date: 20160314
  Receipt Date: 20160314
  Transmission Date: 20160526
  Serious: Yes (Other)
  Sender: FDA-Public Use
  Company Number: US-TEVA-642075USA

PATIENT
  Sex: Female

DRUGS (1)
  1. ZECUITY [Suspect]
     Active Substance: SUMATRIPTAN SUCCINATE
     Route: 062
     Dates: start: 201602

REACTIONS (6)
  - Device leakage [Unknown]
  - Application site erythema [Recovering/Resolving]
  - Application site discolouration [Recovering/Resolving]
  - Device battery issue [Unknown]
  - Device use error [Unknown]
  - Application site burn [Recovering/Resolving]
